FAERS Safety Report 6728686-7 (Version None)
Quarter: 2010Q2

REPORT INFORMATION
  Report Type: 
  Country: None (occurrence: None)
  Receive Date: 20100517
  Receipt Date: 20100429
  Transmission Date: 20101027
  Serious: Yes (Other)
  Sender: FDA-Public Use
  Company Number: PHEH2006US11382

PATIENT
  Sex: Female
  Weight: 77.551 kg

DRUGS (16)
  1. ZOMETA [Suspect]
     Indication: LEIOMYOSARCOMA
     Dosage: UNK
     Dates: start: 20030101, end: 20060401
  2. TIAZAC [Concomitant]
  3. DIOVAN [Concomitant]
  4. FEMARA [Concomitant]
  5. CHEMOTHERAPEUTICS NOS [Concomitant]
     Dosage: UNK
     Dates: start: 20030101
  6. RADIATION [Concomitant]
  7. TAXOTERE [Suspect]
     Dosage: UNK
     Dates: start: 20030101
  8. PREMARIN [Concomitant]
  9. GEMZAR [Concomitant]
  10. ADRIAMYCIN PFS [Concomitant]
  11. IFEX [Concomitant]
  12. MESNA [Concomitant]
  13. ATIVAN [Concomitant]
  14. ZOFRAN [Concomitant]
  15. CELEBREX [Concomitant]
  16. CIPROFLOXACIN [Concomitant]

REACTIONS (37)
  - ANXIETY [None]
  - BONE DEBRIDEMENT [None]
  - BONE DISORDER [None]
  - BONE EROSION [None]
  - BREAST CALCIFICATIONS [None]
  - CELLULITIS [None]
  - CHEST WALL MASS [None]
  - DECREASED INTEREST [None]
  - DEFORMITY [None]
  - EMOTIONAL DISTRESS [None]
  - ETHMOID SINUS SURGERY [None]
  - GENERAL PHYSICAL HEALTH DETERIORATION [None]
  - HYPERBARIC OXYGEN THERAPY [None]
  - HYPOKALAEMIA [None]
  - HYPOPHAGIA [None]
  - IMPAIRED HEALING [None]
  - INFECTION [None]
  - INGUINAL MASS [None]
  - JOINT DESTRUCTION [None]
  - LEIOMYOSARCOMA METASTATIC [None]
  - LIFE EXPECTANCY SHORTENED [None]
  - MALIGNANT NEOPLASM PROGRESSION [None]
  - METASTASES TO BONE [None]
  - METASTASES TO MUSCLE [None]
  - ORAL CAVITY FISTULA [None]
  - OSTEONECROSIS OF JAW [None]
  - PAIN [None]
  - PLEURAL EFFUSION [None]
  - PULMONARY MASS [None]
  - SARCOMA OF SKIN [None]
  - SINUS ANTROSTOMY [None]
  - SINUS OPERATION [None]
  - SINUSITIS [None]
  - SYNCOPE [None]
  - TOOTH ABSCESS [None]
  - TOOTH EXTRACTION [None]
  - TOOTH INFECTION [None]
